FAERS Safety Report 8070077 (Version 2)
Quarter: 2014Q1

REPORT INFORMATION
  Report Type: Spontaneous
  Country: CA (occurrence: CA)
  Receive Date: 20110804
  Receipt Date: 20140227
  Transmission Date: 20141002
  Serious: Yes (Hospitalization, Other)
  Sender: FDA-Public Use
  Company Number: CA-GILEAD-E2B_00001355

PATIENT
  Sex: Female

DRUGS (9)
  1. AMBRISENTAN [Suspect]
     Indication: PULMONARY ARTERIAL HYPERTENSION
     Dosage: 10 MG, QD
     Route: 048
     Dates: start: 20101004, end: 20131207
  2. AMBRISENTAN [Suspect]
     Dosage: 5 MG, QD
     Route: 048
  3. AMBRISENTAN [Suspect]
     Dosage: 10 MG, QD
     Route: 065
     Dates: start: 20140106
  4. SYNTHROID [Concomitant]
  5. PREDNISONE [Concomitant]
  6. ASA [Concomitant]
  7. VITAMIN D NOS [Concomitant]
  8. TUMS                               /07357001/ [Concomitant]
  9. MONTELUKAST [Concomitant]

REACTIONS (4)
  - Sepsis [Not Recovered/Not Resolved]
  - Cellulitis [Recovered/Resolved]
  - Acne [Not Recovered/Not Resolved]
  - Rash papular [Not Recovered/Not Resolved]
